FAERS Safety Report 9038726 (Version 1)
Quarter: 2013Q1

REPORT INFORMATION
  Report Type: Report from Study
  Country: US (occurrence: US)
  Receive Date: 20130129
  Receipt Date: 20130129
  Transmission Date: 20140127
  Serious: No
  Sender: FDA-Public Use
  Company Number: US-ABBOTT-12P-163-0934955-00

PATIENT
  Sex: Female
  Weight: 55.84 kg

DRUGS (13)
  1. HUMIRA 40 MG/0.8 ML PEN [Suspect]
     Indication: RHEUMATOID ARTHRITIS
     Dosage: INTERRUPTED
     Route: 058
     Dates: start: 20120329, end: 20120412
  2. HUMIRA 40 MG/0.8 ML PEN [Suspect]
     Route: 058
     Dates: start: 20120511
  3. PREDNISONE [Concomitant]
     Indication: RHEUMATOID ARTHRITIS
     Dosage: DAILY, BEGAN TAPERING 30 APR 2012
     Route: 048
  4. METHOTREXATE [Concomitant]
     Indication: ARTHRITIS
     Dosage: 2.5MG 8 TABLETS BY MOUTH WEEKLY
  5. PRILOSEC [Concomitant]
     Indication: GASTRIC ULCER
     Dosage: DAILY
     Route: 048
  6. PRILOSEC [Concomitant]
     Indication: PROPHYLAXIS
  7. CALCIUM [Concomitant]
     Indication: PRODUCT USED FOR UNKNOWN INDICATION
     Dosage: DAILY
     Route: 048
  8. COUMADIN [Concomitant]
     Indication: THROMBOSIS
     Dosage: DAILY; DECREASED TO 2MG ON 11 MAY 2012
     Route: 048
  9. LEUCOVORIN CALCIUM [Concomitant]
     Indication: ADVERSE DRUG REACTION
     Dosage: 5MG WEEKLY 1 DAY AFTER METHOTREXATE
     Route: 048
  10. LEUCOVORIN CALCIUM [Concomitant]
     Indication: PROPHYLAXIS
  11. CENTRUM SENIOR [Concomitant]
     Indication: VITAMIN SUPPLEMENTATION
     Dosage: DAILY
  12. FISH OIL [Concomitant]
     Indication: PRODUCT USED FOR UNKNOWN INDICATION
     Dosage: DAILY
     Route: 048
  13. BIOTINE [Concomitant]
     Indication: VITAMIN SUPPLEMENTATION
     Dosage: DAILY
     Route: 048

REACTIONS (8)
  - Fatigue [Recovered/Resolved]
  - Nasopharyngitis [Recovered/Resolved]
  - Local swelling [Not Recovered/Not Resolved]
  - Pain in extremity [Not Recovered/Not Resolved]
  - Joint swelling [Not Recovered/Not Resolved]
  - Nasal congestion [Recovered/Resolved]
  - Cough [Recovered/Resolved]
  - Drug dose omission [Not Recovered/Not Resolved]
